FAERS Safety Report 19651596 (Version 1)
Quarter: 2021Q3

REPORT INFORMATION
  Report Type: Spontaneous
  Country: US (occurrence: US)
  Receive Date: 20210731
  Receipt Date: 20210731
  Transmission Date: 20211014
  Serious: Yes (Hospitalization)
  Sender: FDA-Public Use
  Company Number: None

PATIENT
  Age: 46 Year
  Sex: Male
  Weight: 74.9 kg

DRUGS (4)
  1. METHOTREXATE. [Suspect]
     Active Substance: METHOTREXATE
     Dates: end: 20200525
  2. VINCRISTINE SULFATE. [Suspect]
     Active Substance: VINCRISTINE SULFATE
     Dates: end: 20200518
  3. MERCAPTOPURINE. [Suspect]
     Active Substance: MERCAPTOPURINE
     Dates: end: 20200530
  4. PREDNISONE. [Suspect]
     Active Substance: PREDNISONE
     Dates: end: 20200522

REACTIONS (20)
  - Respiratory rate increased [None]
  - COVID-19 [None]
  - Respiratory failure [None]
  - Steroid diabetes [None]
  - Back pain [None]
  - Platelet count decreased [None]
  - Pneumonia viral [None]
  - Acute respiratory distress syndrome [None]
  - Device dislocation [None]
  - Sputum discoloured [None]
  - Lung opacity [None]
  - COVID-19 pneumonia [None]
  - Bacterial infection [None]
  - White blood cell count decreased [None]
  - Illness [None]
  - Headache [None]
  - Depression [None]
  - Tenderness [None]
  - Respiratory disorder [None]
  - Decubitus ulcer [None]

NARRATIVE: CASE EVENT DATE: 20200526
